FAERS Safety Report 10072530 (Version 1)
Quarter: 2014Q2

REPORT INFORMATION
  Report Type: Spontaneous
  Country: PK (occurrence: PK)
  Receive Date: 20140411
  Receipt Date: 20140411
  Transmission Date: 20141212
  Serious: Yes (Death)
  Sender: FDA-Public Use
  Company Number: PK-SA-2014SA041443

PATIENT
  Age: 63 Year
  Sex: Female

DRUGS (2)
  1. LANTUS [Suspect]
     Indication: TYPE 2 DIABETES MELLITUS
     Route: 058
     Dates: start: 2009, end: 20140328
  2. ANTIHYPERTENSIVES [Concomitant]

REACTIONS (1)
  - Cardiac arrest [Fatal]
